FAERS Safety Report 21319598 (Version 1)
Quarter: 2022Q3

REPORT INFORMATION
  Report Type: Spontaneous
  Country: US (occurrence: US)
  Receive Date: 20220911
  Receipt Date: 20220911
  Transmission Date: 20221027
  Serious: No
  Sender: FDA-Public Use
  Company Number: US-SA-SAC20220905000078

PATIENT
  Age: 46 Year
  Sex: Male

DRUGS (2)
  1. DUPIXENT [Suspect]
     Active Substance: DUPILUMAB
     Indication: Dermatitis
     Dosage: 300 MG FREQUENCY: OTHER
     Route: 058
     Dates: start: 20220603, end: 20220819
  2. DUPIXENT [Suspect]
     Active Substance: DUPILUMAB
     Indication: Tinea cruris

REACTIONS (3)
  - Pruritus [Unknown]
  - Erythema [Unknown]
  - Product use in unapproved indication [Unknown]
